FAERS Safety Report 5759445-X (Version None)
Quarter: 2008Q2

REPORT INFORMATION
  Report Type: 
  Country: None (occurrence: None)
  Receive Date: 20080605
  Receipt Date: 20071127
  Transmission Date: 20081010
  Serious: No
  Sender: FDA-Public Use
  Company Number: US-BAYER-200715711NA

PATIENT
  Age: 35 Year
  Sex: Female
  Weight: 82 kg

DRUGS (2)
  1. MIRENA [Suspect]
     Indication: CONTRACEPTION
     Route: 015
     Dates: start: 20060801, end: 20071127
  2. DEPO PROVERA (NOS) [Concomitant]

REACTIONS (5)
  - CHEST PAIN [None]
  - IRRITABILITY [None]
  - IUCD COMPLICATION [None]
  - LIBIDO DECREASED [None]
  - PROCEDURAL PAIN [None]
